FAERS Safety Report 10042285 (Version 3)
Quarter: 2014Q2

REPORT INFORMATION
  Report Type: Spontaneous
  Country: CH (occurrence: CH)
  Receive Date: 20140327
  Receipt Date: 20140423
  Transmission Date: 20141212
  Serious: Yes (Life-Threatening, Hospitalization, Other)
  Sender: FDA-Public Use
  Company Number: CH-ELI_LILLY_AND_COMPANY-CH201403007908

PATIENT
  Age: 65 Year
  Sex: Male
  Weight: 92 kg

DRUGS (4)
  1. EFIENT [Suspect]
     Indication: ACUTE CORONARY SYNDROME
     Dosage: 60 MG, SINGLE
     Route: 048
     Dates: start: 20120306
  2. EFIENT [Suspect]
     Dosage: 10 MG, QD
     Route: 065
  3. ASPIRIN [Concomitant]
     Dosage: UNK, SINGLE
     Route: 065
  4. ASPIRIN [Concomitant]
     Dosage: 100 MG, QD
     Route: 065

REACTIONS (7)
  - Pericardial haemorrhage [Recovered/Resolved]
  - Cardiac disorder [Recovered/Resolved]
  - Hypovolaemic shock [Recovered/Resolved]
  - Pericardial effusion [Recovered/Resolved]
  - Cardiac tamponade [Recovered/Resolved]
  - Coronary artery stenosis [Unknown]
  - Ischaemia [Unknown]
